FAERS Safety Report 19748011 (Version 1)
Quarter: 2021Q3

REPORT INFORMATION
  Report Type: Report from Study
  Country: None (occurrence: CN)
  Receive Date: 20210826
  Receipt Date: 20210826
  Transmission Date: 20211014
  Serious: Yes (Hospitalization)
  Sender: FDA-Public Use
  Company Number: SAMSUNG BIOEPIS-SB-2021-11552

PATIENT
  Weight: 62 kg

DRUGS (26)
  1. AMMONIUM CHLORIDE;CODEINE;GLYCYRRHIZIC ACID [Concomitant]
     Indication: INFLUENZA LIKE ILLNESS
     Dosage: 10 ML, TID
     Route: 048
  2. DEXAMETHASONE SODIUM PHOSPHATE. [Concomitant]
     Active Substance: DEXAMETHASONE SODIUM PHOSPHATE
     Indication: INFLUENZA LIKE ILLNESS
     Dosage: 5 MG, QD
     Route: 041
  3. L?ORNITHINE L?ASPARTATE GRANULES [Concomitant]
     Dosage: 3 G, TID
     Route: 048
  4. DOCETAXEL. [Suspect]
     Active Substance: DOCETAXEL
     Dosage: 118.2 MG, CYCLIC; CYCLICAL
     Route: 041
  5. METHOXYPHENAMINE;THEOPHYLLINE [Concomitant]
     Indication: INFLUENZA LIKE ILLNESS
     Dosage: 2 DF, BID
     Route: 048
  6. LANSOPRAZOLE. [Concomitant]
     Active Substance: LANSOPRAZOLE
     Indication: PROPHYLAXIS
     Dosage: 30 MG, QD
     Route: 042
  7. TROPISETRON HYDROCHLORIDE [Concomitant]
     Active Substance: TROPISETRON HYDROCHLORIDE
     Indication: PROPHYLAXIS OF NAUSEA AND VOMITING
     Dosage: 5 MG, QD
     Route: 042
  8. DOCETAXEL. [Suspect]
     Active Substance: DOCETAXEL
     Dosage: 118.2 MG, CYCLIC; CYCLICAL
     Route: 041
  9. DEXAMETHASONE SODIUM PHOSPHATE. [Concomitant]
     Active Substance: DEXAMETHASONE SODIUM PHOSPHATE
     Indication: CHEMOTHERAPY SIDE EFFECT PROPHYLAXIS
     Dosage: 10 MG, QD
     Route: 042
  10. DIPHENHYDRAMINE HYDROCHLORIDE. [Concomitant]
     Active Substance: DIPHENHYDRAMINE HYDROCHLORIDE
     Indication: CHEMOTHERAPY SIDE EFFECT PROPHYLAXIS
     Dosage: 20 MG, QD
     Route: 030
  11. L?ORNITHINE L?ASPARTATE GRANULES [Concomitant]
     Indication: PROPHYLAXIS
     Dosage: 3 G, QD
     Route: 048
  12. SB3 (TRASTUZUMAB?DTTB) [Suspect]
     Active Substance: TRASTUZUMAB-DTTB
     Indication: BREAST CANCER
     Dosage: 472 MG, CYCLIC; CYCLICAL
  13. SB3 (TRASTUZUMAB?DTTB) [Suspect]
     Active Substance: TRASTUZUMAB-DTTB
     Dosage: 354 MG, CYCLIC; CYCLICAL
  14. DOCETAXEL. [Suspect]
     Active Substance: DOCETAXEL
     Dosage: 94.6 MG, CYCLIC; CYCLICAL
     Route: 041
  15. CARBOPLATIN. [Suspect]
     Active Substance: CARBOPLATIN
     Dosage: 645.9 MG, CYCLIC; CYCLICAL
     Route: 041
  16. CARBOPLATIN. [Suspect]
     Active Substance: CARBOPLATIN
     Dosage: 580.4 MG, CYCLIC; CYCLICAL
     Route: 041
  17. METHOXYPHENAMINE;THEOPHYLLINE [Concomitant]
     Dosage: 2 DF, TID
     Route: 048
  18. SB3 (TRASTUZUMAB?DTTB) [Suspect]
     Active Substance: TRASTUZUMAB-DTTB
     Dosage: 354 MG, CYCLIC; CYCLICAL
  19. DOCETAXEL. [Suspect]
     Active Substance: DOCETAXEL
     Indication: BREAST CANCER
     Dosage: 121.7 MG, CYCLIC; CYCLICAL
     Route: 041
  20. CARBOPLATIN. [Suspect]
     Active Substance: CARBOPLATIN
     Indication: BREAST CANCER
     Dosage: 607.2 MG, CYCLIC; CYCLICAL
     Route: 041
  21. CARBOPLATIN. [Suspect]
     Active Substance: CARBOPLATIN
     Dosage: 609.4 MG, CYCLIC; CYCLICAL
     Route: 041
  22. CARBOPLATIN. [Suspect]
     Active Substance: CARBOPLATIN
     Dosage: 437.0 MG, CYCLIC; CYCLICAL
     Route: 041
  23. SB3 (TRASTUZUMAB?DTTB) [Suspect]
     Active Substance: TRASTUZUMAB-DTTB
     Dosage: 472 MG, CYCLIC; CYCLICAL
  24. SB3 (TRASTUZUMAB?DTTB) [Suspect]
     Active Substance: TRASTUZUMAB-DTTB
     Dosage: 354 MG, CYCLIC; CYCLICAL
  25. DOCETAXEL. [Suspect]
     Active Substance: DOCETAXEL
     Dosage: 118.2 MG, CYCLIC; CYCLICAL
     Route: 041
  26. BUDESONIDE. [Concomitant]
     Active Substance: BUDESONIDE
     Indication: INFLUENZA LIKE ILLNESS
     Dosage: 1 MG, QD
     Route: 045

REACTIONS (1)
  - Myelosuppression [Recovered/Resolved]
